FAERS Safety Report 9058808 (Version 4)
Quarter: 2013Q2

REPORT INFORMATION
  Report Type: Report from Study
  Country: US (occurrence: US)
  Receive Date: 20130204
  Receipt Date: 20130620
  Transmission Date: 20140414
  Serious: Yes (Hospitalization)
  Sender: FDA-Public Use
  Company Number: US-ROCHE-1167351

PATIENT
  Age: 57 Year
  Sex: Male
  Weight: 104.42 kg

DRUGS (4)
  1. ZELBORAF [Suspect]
     Indication: METASTATIC MALIGNANT MELANOMA
     Route: 048
     Dates: start: 20110830
  2. ZELBORAF [Suspect]
     Route: 048
     Dates: start: 20120801
  3. MEGARED OMEGA-3 KRILL OIL [Concomitant]
     Indication: ARTHRALGIA
     Route: 048
  4. MEGARED OMEGA-3 KRILL OIL [Concomitant]
     Indication: JOINT STIFFNESS

REACTIONS (9)
  - Brain neoplasm [Recovered/Resolved]
  - Arthralgia [Not Recovered/Not Resolved]
  - Photosensitivity reaction [Not Recovered/Not Resolved]
  - Fatigue [Not Recovered/Not Resolved]
  - Alopecia [Not Recovered/Not Resolved]
  - Neuropathy peripheral [Not Recovered/Not Resolved]
  - Musculoskeletal stiffness [Not Recovered/Not Resolved]
  - Squamous cell carcinoma of skin [Recovered/Resolved]
  - Oesophageal disorder [Unknown]
